FAERS Safety Report 10398716 (Version 1)
Quarter: 2014Q3

REPORT INFORMATION
  Report Type: Spontaneous
  Country: US (occurrence: None)
  Receive Date: 20140818
  Receipt Date: 20140818
  Transmission Date: 20150326
  Serious: Yes (Other)
  Sender: FDA-Public Use
  Company Number: None

PATIENT
  Age: 55 Year
  Sex: Female
  Weight: 109.32 kg

DRUGS (2)
  1. ZOLEDRONIC ACID [Suspect]
     Active Substance: ZOLEDRONIC ACID
     Indication: BONE DISORDER
     Dosage: ANUALLY
     Route: 042
     Dates: start: 20140814
  2. ZOLEDRONIC ACID [Suspect]
     Active Substance: ZOLEDRONIC ACID
     Indication: CHONDROPATHY
     Dosage: ANUALLY
     Route: 042
     Dates: start: 20140814

REACTIONS (8)
  - Chills [None]
  - Nausea [None]
  - Pain [None]
  - Pyrexia [None]
  - Fatigue [None]
  - Retching [None]
  - Aphagia [None]
  - Bone pain [None]

NARRATIVE: CASE EVENT DATE: 20140815
